FAERS Safety Report 19618901 (Version 1)
Quarter: 2021Q3

REPORT INFORMATION
  Report Type: Spontaneous
  Country: US (occurrence: US)
  Receive Date: 20210727
  Receipt Date: 20210727
  Transmission Date: 20211014
  Serious: No
  Sender: FDA-Public Use
  Company Number: US-ROCHE-2781870

PATIENT
  Age: 58 Year
  Sex: Female

DRUGS (3)
  1. TUKYSA [Concomitant]
     Active Substance: TUCATINIB
  2. XELODA [Suspect]
     Active Substance: CAPECITABINE
     Indication: COLON CANCER
     Route: 048
     Dates: start: 202003
  3. HERCEPTIN [Suspect]
     Active Substance: TRASTUZUMAB
     Indication: COLON CANCER
     Route: 065

REACTIONS (2)
  - No adverse event [Unknown]
  - Off label use [Unknown]

NARRATIVE: CASE EVENT DATE: 20210301
